FAERS Safety Report 9682448 (Version 2)
Quarter: 2013Q4

REPORT INFORMATION
  Report Type: Report from Study
  Country: US (occurrence: US)
  Receive Date: 20131112
  Receipt Date: 20131213
  Transmission Date: 20140711
  Serious: Yes (Hospitalization)
  Sender: FDA-Public Use
  Company Number: US-009507513-1311USA002928

PATIENT
  Age: 67 Year
  Sex: Female
  Weight: 95.5 kg

DRUGS (4)
  1. VORINOSTAT [Suspect]
     Indication: MYELODYSPLASTIC SYNDROME
     Dosage: 300 MG BID ON DAYS 3-9
     Route: 048
     Dates: start: 20130829
  2. VORINOSTAT [Suspect]
     Dosage: 300 MG BID ON DAYS 3-9
     Route: 048
     Dates: start: 20130704
  3. AZACITIDINE [Suspect]
     Indication: MYELODYSPLASTIC SYNDROME
     Dosage: 75 MG/M2 ON DAYS 1-7 OR 75 MG/M2 ON DAYS 1-5 AND DAYS 8-9
     Dates: start: 20130827
  4. AZACITIDINE [Suspect]
     Dosage: 75 MG/M2 SQ OR IV ON DAYS 1-7 OR 75 MG/M2 SQ OR IV ON DAYS 1-5 AND DAYS 8-9
     Dates: start: 20130702

REACTIONS (1)
  - Lung infection [Recovering/Resolving]
